FAERS Safety Report 13827519 (Version 1)
Quarter: 2017Q3

REPORT INFORMATION
  Report Type: Other
  Country: GB (occurrence: ES)
  Receive Date: 20170802
  Receipt Date: 20170802
  Transmission Date: 20171127
  Serious: Yes (Life-Threatening, Other)
  Sender: FDA-Public Use
  Company Number: ES-INTERNATIONAL MEDICATION SYSTEMS, LIMITED-2024096

PATIENT
  Sex: Male
  Weight: .65 kg

DRUGS (9)
  1. HYDROCORTISONE. [Suspect]
     Active Substance: HYDROCORTISONE
  2. MEROPENEM. [Concomitant]
     Active Substance: MEROPENEM
  3. NOREPINEPHRINE. [Suspect]
     Active Substance: NOREPINEPHRINE
  4. SULFAMETHOXAZOLE AND TRIMETHOPRIM [Concomitant]
     Active Substance: SULFAMETHOXAZOLE\TRIMETHOPRIM
  5. EPINEPHRINE. [Suspect]
     Active Substance: EPINEPHRINE
  6. DOPAMINE [Suspect]
     Active Substance: DOPAMINE\DOPAMINE HYDROCHLORIDE
  7. DOPAMINE [Suspect]
     Active Substance: DOPAMINE\DOPAMINE HYDROCHLORIDE
  8. LEVOFLOXACIN. [Concomitant]
     Active Substance: LEVOFLOXACIN
  9. DOBUTAMINE [Suspect]
     Active Substance: DOBUTAMINE\DOBUTAMINE HYDROCHLORIDE

REACTIONS (6)
  - Drug ineffective [Unknown]
  - Anuria [Recovered/Resolved]
  - Tachycardia [Recovered/Resolved]
  - Metabolic acidosis [Recovered/Resolved]
  - Generalised oedema [Recovered/Resolved]
  - Hyperlactacidaemia [Recovered/Resolved]
